FAERS Safety Report 6669432-5 (Version None)
Quarter: 2010Q2

REPORT INFORMATION
  Report Type: 
  Country: None (occurrence: None)
  Receive Date: 20100406
  Receipt Date: 20100323
  Transmission Date: 20101027
  Serious: Yes (Hospitalization, Other)
  Sender: FDA-Public Use
  Company Number: PHHY2010US19399

PATIENT
  Age: 14 Year
  Sex: Female

DRUGS (3)
  1. CARBAMAZEPINE [Suspect]
     Indication: EPILEPSY
  2. ZONISAMIDE [Suspect]
     Indication: EPILEPSY
  3. VALPROATE SODIUM [Suspect]
     Indication: EPILEPSY

REACTIONS (18)
  - ABDOMINAL DISTENSION [None]
  - ABDOMINAL MASS [None]
  - ACNE [None]
  - ASCITES [None]
  - CHOLECYSTECTOMY [None]
  - CONSTIPATION [None]
  - CYSTITIS [None]
  - HIRSUTISM [None]
  - INTESTINAL OBSTRUCTION [None]
  - OOPHORECTOMY [None]
  - OVARIAN GRANULOSA-THECA CELL TUMOUR [None]
  - OVARIAN MASS [None]
  - PANCREATITIS [None]
  - PELVIC MASS [None]
  - PERITONITIS SCLEROSING [None]
  - PYREXIA [None]
  - RESPIRATORY DISTRESS [None]
  - VOMITING [None]
